FAERS Safety Report 5694779-9 (Version None)
Quarter: 2008Q2

REPORT INFORMATION
  Report Type: 
  Country: None (occurrence: None)
  Receive Date: 20080404
  Receipt Date: 20080324
  Transmission Date: 20081010
  Serious: Yes (Hospitalization, Other)
  Sender: FDA-Public Use
  Company Number: US-BAYER-200713360BCC

PATIENT
  Age: 66 Year
  Sex: Female
  Weight: 54 kg

DRUGS (3)
  1. PHILLIPS MILK OF MAGNESIA ORIGINAL [Suspect]
     Indication: CONSTIPATION
     Dosage: TOTAL DAILY DOSE: 15 ML  UNIT DOSE: 15 ML
     Route: 048
     Dates: start: 20070922
  2. NEXIUM [Concomitant]
  3. ATARAX [Concomitant]

REACTIONS (1)
  - ABDOMINAL DISTENSION [None]
